FAERS Safety Report 17661072 (Version 1)
Quarter: 2020Q2

REPORT INFORMATION
  Report Type: Spontaneous
  Country: DE (occurrence: DE)
  Receive Date: 20200413
  Receipt Date: 20200413
  Transmission Date: 20200713
  Serious: Yes (Hospitalization)
  Sender: FDA-Public Use
  Company Number: DE-TEVA-2020-DE-1222711

PATIENT
  Age: 56 Year
  Sex: Female

DRUGS (15)
  1. CALCET 950MG [Concomitant]
     Dosage: 950 MG, 1-2-2-0
  2. COLCHICUM [Suspect]
     Active Substance: COLCHICINE
     Dosage: NK MG, PAUSE SINCE 30122019
     Route: 065
  3. MIMPARA 30MG [Concomitant]
     Dosage: 30 MG, 1-0-0-0
  4. TILIDINE/NALOXONE [Concomitant]
     Active Substance: NALOXONE HYDROCHLORIDE\TILIDINE HYDROCHLORIDE
     Dosage: 8 | 100 MG, IF NECESSARY
  5. DIGITOXIN [Suspect]
     Active Substance: DIGITOXIN
     Dosage: 0.07 MG, 1-0-0-0
     Route: 065
  6. DILTIAZEM. [Suspect]
     Active Substance: DILTIAZEM
     Dosage: 60 MG, 1-0.5-0.5-0
     Route: 065
  7. RAMIPRIL. [Concomitant]
     Active Substance: RAMIPRIL
     Dosage: 5 MG, 0-0-1-0
  8. ACETYLSALICYLSAURE [Concomitant]
     Active Substance: ASPIRIN
     Dosage: 100 MG, 0-1-0-0
  9. METAMIZOL [Concomitant]
     Active Substance: METAMIZOLE SODIUM
     Dosage: 500 MG, 4X
  10. PANTOPRAZOL [Concomitant]
     Active Substance: PANTOPRAZOLE SODIUM
     Dosage: 40 MG, 1-0-0-0
  11. IPRAMOL [Concomitant]
     Active Substance: ALBUTEROL SULFATE\IPRATROPIUM BROMIDE
     Dosage: 0.5|2.5 MG, 6X
  12. ATORVASTATIN [Concomitant]
     Active Substance: ATORVASTATIN
     Dosage: 40 MG, 0-0-0.5-0, TABLETS
  13. PHENPROCOUMON [Concomitant]
     Active Substance: PHENPROCOUMON
     Dosage: 3 MG, BY VALUE
  14. FORMATRIS 12MIKROGRAMM NOVOLIZER [Concomitant]
     Dosage: 12 MICROGRAM, 1-0-1-0
  15. LEVOTHYROXIN-NATRIUM [Concomitant]
     Active Substance: LEVOTHYROXINE SODIUM
     Dosage: 100 MICROGRAM, 1-0-0-0

REACTIONS (2)
  - Visual impairment [Unknown]
  - Dizziness [Unknown]
